FAERS Safety Report 8050427-4 (Version None)
Quarter: 2012Q1

REPORT INFORMATION
  Report Type: 
  Country: None (occurrence: None)
  Receive Date: 20120117
  Receipt Date: 20120113
  Transmission Date: 20120608
  Serious: Yes (Death, Life-Threatening, Hospitalization)
  Sender: FDA-Public Use
  Company Number: DE-B.I. PHARMACEUTICALS,INC./RIDGEFIELD-2012-DE-00119DE

PATIENT
  Age: 77 Year
  Sex: Male
  Weight: 120 kg

DRUGS (2)
  1. PRADAXA [Suspect]
     Indication: ATRIAL FIBRILLATION
     Dosage: 220 MG
     Dates: end: 20111011
  2. ASPIRIN [Concomitant]

REACTIONS (3)
  - RENAL IMPAIRMENT [None]
  - DEATH [None]
  - DIVERTICULITIS INTESTINAL HAEMORRHAGIC [None]
